FAERS Safety Report 9124329 (Version 5)
Quarter: 2015Q1

REPORT INFORMATION
  Report Type: Spontaneous
  Country: US (occurrence: US)
  Receive Date: 20130116
  Receipt Date: 20150316
  Transmission Date: 20150721
  Serious: No
  Sender: FDA-Public Use
  Company Number: US-009507513-1301USA006345

PATIENT
  Sex: Male
  Weight: 93.42 kg

DRUGS (2)
  1. PROPECIA [Suspect]
     Active Substance: FINASTERIDE
     Indication: ANDROGENETIC ALOPECIA
     Dosage: 1 MG, QD
     Route: 048
     Dates: start: 1999
  2. PROPECIA [Suspect]
     Active Substance: FINASTERIDE
     Dosage: 1 MG, QOD
     Route: 048
     Dates: start: 20101029

REACTIONS (36)
  - Liver function test abnormal [Unknown]
  - Atelectasis [Unknown]
  - Anxiety [Unknown]
  - Protein urine [Unknown]
  - Fluid retention [Unknown]
  - Heart rate irregular [Unknown]
  - Thirst [Unknown]
  - Anaemia [Unknown]
  - Oestradiol increased [Unknown]
  - Blood testosterone increased [Unknown]
  - Drug ineffective [Unknown]
  - Libido decreased [Unknown]
  - Hypothyroidism [Unknown]
  - Ascites [Unknown]
  - Insomnia [Unknown]
  - Chest discomfort [Unknown]
  - Fatigue [Unknown]
  - Sexual dysfunction [Not Recovered/Not Resolved]
  - Increased tendency to bruise [Unknown]
  - Headache [Recovered/Resolved]
  - Schizophrenia simple [Unknown]
  - Decreased interest [Unknown]
  - Testicular failure [Unknown]
  - Phlebitis [Unknown]
  - Hypertension [Unknown]
  - Computerised tomogram abnormal [Unknown]
  - Bipolar disorder [Unknown]
  - Erectile dysfunction [Not Recovered/Not Resolved]
  - Pulmonary oedema [Unknown]
  - Restless legs syndrome [Unknown]
  - Inappropriate schedule of drug administration [Unknown]
  - Pollakiuria [Unknown]
  - Asthenia [Unknown]
  - Depression [Not Recovered/Not Resolved]
  - Wheezing [Unknown]
  - Attention deficit/hyperactivity disorder [Unknown]

NARRATIVE: CASE EVENT DATE: 2000
